FAERS Safety Report 7439525-3 (Version None)
Quarter: 2011Q2

REPORT INFORMATION
  Report Type: 
  Country: None (occurrence: None)
  Receive Date: 20110427
  Receipt Date: 20110413
  Transmission Date: 20111010
  Serious: Yes (Hospitalization)
  Sender: FDA-Public Use
  Company Number: ES-CELGENEUS-144-21880-11041607

PATIENT
  Age: 77 Year
  Sex: Male

DRUGS (2)
  1. REVLIMID [Suspect]
     Dosage: 25 MILLIGRAM
     Route: 048
     Dates: start: 20100801, end: 20101101
  2. DEXAMETHASONE [Concomitant]
     Dosage: 40 MILLIGRAM
     Route: 065

REACTIONS (5)
  - BONE MARROW TOXICITY [None]
  - GENERAL PHYSICAL HEALTH DETERIORATION [None]
  - TOXICITY TO VARIOUS AGENTS [None]
  - MALAISE [None]
  - DISEASE PROGRESSION [None]
